FAERS Safety Report 8400018-8 (Version None)
Quarter: 2012Q2

REPORT INFORMATION
  Report Type: 
  Country: None (occurrence: None)
  Receive Date: 20120531
  Receipt Date: 20120524
  Transmission Date: 20120825
  Serious: Yes (Other)
  Sender: FDA-Public Use
  Company Number: JP-FRI-1000030482

PATIENT
  Sex: Male

DRUGS (10)
  1. MEMANTINE HCL [Suspect]
     Indication: DEMENTIA
     Dosage: 5 MG
     Route: 048
     Dates: start: 20120413, end: 20120419
  2. MEMANTINE HCL [Suspect]
     Dosage: 10 MG
     Route: 048
     Dates: start: 20120420, end: 20120426
  3. MEMANTINE HCL [Suspect]
     Dosage: 15 MG
     Route: 048
     Dates: start: 20120427, end: 20120503
  4. GLIMEPIRIDE [Concomitant]
     Dosage: 1 DF
     Route: 048
     Dates: start: 20100910
  5. ASPIRIN [Concomitant]
     Dosage: 1 DF
     Route: 048
     Dates: start: 20100910
  6. ACTOS [Concomitant]
     Dosage: 1 DF
     Route: 048
     Dates: start: 20100910
  7. SITAGLIPTIN PHOSPHATE [Concomitant]
     Dosage: 1 DF
     Route: 048
     Dates: start: 20100910
  8. AMLODIPINE [Concomitant]
     Dosage: 1 DF
     Route: 048
     Dates: start: 20100910
  9. MEMANTINE HCL [Suspect]
     Dosage: 20 MG
     Route: 048
     Dates: start: 20120504, end: 20120508
  10. ARICEPT [Concomitant]
     Dosage: 1 DF
     Route: 048
     Dates: start: 20100929

REACTIONS (3)
  - ALTERED STATE OF CONSCIOUSNESS [None]
  - BLOOD PRESSURE INCREASED [None]
  - RESPIRATORY DEPRESSION [None]
